FAERS Safety Report 9417905 (Version 1)
Quarter: 2013Q3

REPORT INFORMATION
  Report Type: Spontaneous
  Country: US (occurrence: US)
  Receive Date: 20130724
  Receipt Date: 20130724
  Transmission Date: 20140515
  Serious: Yes (Other)
  Sender: FDA-Public Use
  Company Number: US-TEVA-420081USA

PATIENT
  Age: 31 Year
  Sex: Female
  Weight: 69.01 kg

DRUGS (2)
  1. PARAGARD 380A [Suspect]
     Indication: CONTRACEPTION
     Dates: start: 20130619, end: 20130715
  2. PRENATAL VITAMINS [Concomitant]
     Indication: BREAST FEEDING

REACTIONS (1)
  - Device dislocation [Recovered/Resolved]
